FAERS Safety Report 9759667 (Version 1)
Quarter: 2013Q4

REPORT INFORMATION
  Report Type: Spontaneous
  Country: US (occurrence: US)
  Receive Date: 20131216
  Receipt Date: 20131216
  Transmission Date: 20140711
  Serious: No
  Sender: FDA-Public Use
  Company Number: US-GILEAD-2010-0028592

PATIENT
  Sex: Male

DRUGS (9)
  1. LETAIRIS [Suspect]
     Indication: PULMONARY ARTERIAL HYPERTENSION
     Route: 048
     Dates: start: 20100318
  2. SULFAMETHOXAZOLE [Concomitant]
  3. DILTIAZEM CD [Concomitant]
  4. KALETRA [Concomitant]
  5. CRESTOR [Concomitant]
  6. TRUVADA [Concomitant]
  7. FLUCONAZOLE [Concomitant]
  8. DILTIAZEM HCL [Concomitant]
  9. REVATIO [Concomitant]

REACTIONS (9)
  - Somnambulism [Recovering/Resolving]
  - Nasal congestion [Recovering/Resolving]
  - Paraesthesia [Recovering/Resolving]
  - Flatulence [Recovering/Resolving]
  - Thirst [Recovering/Resolving]
  - Fatigue [Recovering/Resolving]
  - Disturbance in attention [Recovering/Resolving]
  - Diarrhoea [Recovering/Resolving]
  - Oedema [Recovering/Resolving]
